FAERS Safety Report 9028752 (Version 7)
Quarter: 2013Q3

REPORT INFORMATION
  Report Type: Spontaneous
  Country: US (occurrence: US)
  Receive Date: 20130124
  Receipt Date: 20130715
  Transmission Date: 20140515
  Serious: Yes (Other)
  Sender: FDA-Public Use
  Company Number: US-PFIZER INC-2013026677

PATIENT
  Age: 57 Year
  Sex: Male
  Weight: 104 kg

DRUGS (17)
  1. SUTENT [Suspect]
     Indication: METASTATIC RENAL CELL CARCINOMA
     Dosage: 50 MG, FOR 6 WEEKS, THEN RESTED FOR 2 WEEKS
     Dates: start: 201109, end: 201209
  2. SUTENT [Suspect]
     Dosage: 50 MG, 2 WEEKS ON AND 1 WEEK OFF
  3. SUTENT [Suspect]
     Dosage: 50 MG, CYCLIC, 28 DAYS ON AND 14 DAYS OFF
     Dates: start: 2012, end: 20130523
  4. SUTENT [Suspect]
     Dosage: 50 MG, CYCLIC, 28 DAYS ON AND 14 DAYS OFF
     Dates: start: 201305, end: 20130704
  5. SUTENT [Suspect]
     Dosage: 25 MG, UNK
  6. XGEVA [Concomitant]
     Dosage: UNK, MONTHLY
  7. TESTOSTERONE [Concomitant]
     Dosage: EVERY 2 WEEKS
  8. XANAX [Concomitant]
     Indication: ANXIETY
     Dosage: AS NEEDED (PRN)
  9. LOMOTIL [Concomitant]
     Indication: DIARRHOEA
     Dosage: UNK
  10. PHENERGAN [Concomitant]
     Indication: NAUSEA
     Dosage: AS NEEDED (PRN)
  11. NEXIUM [Concomitant]
     Indication: NAUSEA
     Dosage: UNK
  12. LOTREL [Concomitant]
     Dosage: AMLODIPINE 10, BENAZEPRIL HYDROCHLORIDE 40
  13. AMOXICILLIN [Concomitant]
     Dosage: UNK
  14. CEFTIN [Concomitant]
     Dosage: UNK
  15. BUMEX [Concomitant]
     Dosage: UNK
     Dates: start: 20130417
  16. WELCHOL [Concomitant]
     Indication: DIARRHOEA
     Dosage: UNK
  17. HYDROCHLOROTHIAZIDE [Concomitant]
     Dosage: UNK

REACTIONS (26)
  - Capillary leak syndrome [Unknown]
  - Ascites [Not Recovered/Not Resolved]
  - Off label use [Unknown]
  - Anxiety [Unknown]
  - Fluid retention [Not Recovered/Not Resolved]
  - Hypertension [Unknown]
  - Palmar-plantar erythrodysaesthesia syndrome [Unknown]
  - Nausea [Unknown]
  - Diarrhoea [Unknown]
  - Oral pain [Unknown]
  - Hepatic enzyme increased [Not Recovered/Not Resolved]
  - Sinusitis [Unknown]
  - Hepatic function abnormal [Unknown]
  - Weight increased [Unknown]
  - Hepatic steatosis [Unknown]
  - Back pain [Unknown]
  - Arthralgia [Unknown]
  - Weight decreased [Unknown]
  - Gastrooesophageal reflux disease [Unknown]
  - Night sweats [Unknown]
  - Hiccups [Unknown]
  - Erythema [Unknown]
  - Pain in extremity [Unknown]
  - Abnormal faeces [Unknown]
  - Toxicity to various agents [Unknown]
  - Yellow skin [Unknown]
